FAERS Safety Report 24056667 (Version 1)
Quarter: 2024Q3

REPORT INFORMATION
  Report Type: Spontaneous
  Country: CN (occurrence: CN)
  Receive Date: 20240705
  Receipt Date: 20240705
  Transmission Date: 20241016
  Serious: Yes (Life-Threatening, Other)
  Sender: ELI LILLY AND CO
  Company Number: CN-ELI_LILLY_AND_COMPANY-CN202407000504

PATIENT
  Age: 59 Year
  Sex: Male
  Weight: 58 kg

DRUGS (3)
  1. ALIMTA [Suspect]
     Active Substance: PEMETREXED DISODIUM
     Indication: Lung neoplasm malignant
     Dosage: 500 MG, DAILY
     Route: 041
     Dates: start: 20240604, end: 20240604
  2. ALIMTA [Suspect]
     Active Substance: PEMETREXED DISODIUM
     Dosage: 300 MG, DAILY
     Route: 041
     Dates: start: 20240604, end: 20240604
  3. LOBAPLATIN [Suspect]
     Active Substance: LOBAPLATIN
     Indication: Lung neoplasm malignant
     Dosage: 40 MG, DAILY
     Route: 041
     Dates: start: 20240604, end: 20240604

REACTIONS (3)
  - Platelet count decreased [Recovering/Resolving]
  - White blood cell count decreased [Recovering/Resolving]
  - Leukaemoid reaction [Recovering/Resolving]

NARRATIVE: CASE EVENT DATE: 20240610
